FAERS Safety Report 8379030-3 (Version None)
Quarter: 2012Q2

REPORT INFORMATION
  Report Type: 
  Country: None (occurrence: None)
  Receive Date: 20120522
  Receipt Date: 20120522
  Transmission Date: 20120825
  Serious: No
  Sender: FDA-Public Use
  Company Number: None

PATIENT
  Age: 35 Year
  Sex: Male

DRUGS (3)
  1. INCIVEK [Concomitant]
  2. RIBAVIRIN [Suspect]
     Dosage: 600 MG AND 400M QAM AND QPM PO
     Route: 048
     Dates: start: 20120109, end: 20120517
  3. PEGASYS [Suspect]
     Indication: HEPATITIS C
     Dosage: 180 MCG QW SUBCUTANEOUSLY
     Route: 058
     Dates: start: 20120109, end: 20120517

REACTIONS (4)
  - DEPRESSION [None]
  - ANXIETY [None]
  - NAUSEA [None]
  - VOMITING [None]
